FAERS Safety Report 4620650-7 (Version None)
Quarter: 2005Q1

REPORT INFORMATION
  Report Type: 
  Country: None (occurrence: None)
  Receive Date: 20050325
  Receipt Date: 20050210
  Transmission Date: 20050727
  Serious: Yes (Death)
  Sender: FDA-Public Use
  Company Number: 2005S1000492

PATIENT
  Age: 76 Year
  Sex: Female

DRUGS (11)
  1. CLOZAPINE [Suspect]
     Indication: SCHIZOPHRENIA
     Dosage: 100 MG; HS; PO
     Route: 048
     Dates: start: 20040201, end: 20041201
  2. PERCOCET [Concomitant]
  3. MORPHINE [Concomitant]
  4. MEGACE [Concomitant]
  5. HALDOL [Concomitant]
  6. RISPERDAL [Concomitant]
  7. KLONOPIN [Concomitant]
  8. PANTOPRAZOLE SODIUM [Concomitant]
  9. POTASSIUM CHLORIDE [Concomitant]
  10. LORAZEPAM [Concomitant]
  11. FUROSEMIDE [Concomitant]

REACTIONS (4)
  - GENERAL PHYSICAL HEALTH DETERIORATION [None]
  - ORAL INTAKE REDUCED [None]
  - PNEUMONIA ASPIRATION [None]
  - WEIGHT DECREASED [None]
